FAERS Safety Report 9009919 (Version 1)
Quarter: 2013Q1

REPORT INFORMATION
  Report Type: Spontaneous
  Country: US (occurrence: US)
  Receive Date: 20130112
  Receipt Date: 20130112
  Transmission Date: 20140127
  Serious: Yes (Hospitalization)
  Sender: FDA-Public Use
  Company Number: US-009507513-1301USA001290

PATIENT
  Age: 6 Year
  Sex: Female

DRUGS (6)
  1. MONTELUKAST SODIUM [Suspect]
     Dosage: 5 MG, QD
     Route: 048
  2. BUDESONIDE [Suspect]
     Dosage: 100 MICROGRAM, QD
     Route: 030
  3. VENTOLIN (ALBUTEROL SULFATE) [Suspect]
     Dosage: 100 MICROGRAM, QD
     Route: 030
  4. ANTIPYRETIC ANALGESIC KUNIHIRO [Concomitant]
  5. CEFACLOR [Concomitant]
  6. AMOXICILLIN [Concomitant]

REACTIONS (3)
  - Vasculitis [Unknown]
  - Gastrointestinal disorder [Unknown]
  - Conjunctival haemorrhage [Unknown]
